FAERS Safety Report 14258210 (Version 1)
Quarter: 2017Q4

REPORT INFORMATION
  Report Type: Spontaneous
  Country: US (occurrence: US)
  Receive Date: 20171206
  Receipt Date: 20171206
  Transmission Date: 20180321
  Serious: No
  Sender: FDA-Public Use
  Company Number: None

PATIENT
  Sex: Female
  Weight: 49.05 kg

DRUGS (3)
  1. PROBIOTICS [Concomitant]
     Active Substance: PROBIOTICS NOS
  2. FIBER SUPPLEMENTS [Concomitant]
  3. MIRALAX [Suspect]
     Active Substance: POLYETHYLENE GLYCOL 3350
     Indication: CONSTIPATION
     Dosage: ?          QUANTITY:2 CAPFUL;?
     Route: 048
     Dates: start: 20130401, end: 20171026

REACTIONS (9)
  - Educational problem [None]
  - Obsessive-compulsive disorder [None]
  - Sleep disorder [None]
  - Drug administered to patient of inappropriate age [None]
  - Anxiety [None]
  - Initial insomnia [None]
  - Irritability [None]
  - Nightmare [None]
  - Incorrect drug administration duration [None]

NARRATIVE: CASE EVENT DATE: 20171026
